FAERS Safety Report 4730240-3 (Version None)
Quarter: 2005Q3

REPORT INFORMATION
  Report Type: 
  Country: None (occurrence: None)
  Receive Date: 20050728
  Receipt Date: 20050718
  Transmission Date: 20060218
  Serious: Yes (Life-Threatening, Hospitalization)
  Sender: FDA-Public Use
  Company Number: 2005103537

PATIENT
  Age: 48 Year
  Sex: Male
  Weight: 79 kg

DRUGS (1)
  1. FRAGMIN [Suspect]
     Indication: THROMBOSIS PROPHYLAXIS
     Dosage: 5000 I.U. (5000 I.U., 1 IN 1 D), SUBCUTANEOUS
     Route: 058

REACTIONS (3)
  - COR PULMONALE ACUTE [None]
  - PULMONARY EMBOLISM [None]
  - THROMBOSIS [None]
